FAERS Safety Report 19778479 (Version 1)
Quarter: 2021Q3

REPORT INFORMATION
  Report Type: Spontaneous
  Country: US (occurrence: US)
  Receive Date: 20210902
  Receipt Date: 20210902
  Transmission Date: 20211014
  Serious: Yes (Hospitalization)
  Sender: FDA-Public Use
  Company Number: US-ELI_LILLY_AND_COMPANY-US202108011062

PATIENT
  Age: 58 Year
  Sex: Male

DRUGS (22)
  1. PANTOPRAZOLE [Concomitant]
     Active Substance: PANTOPRAZOLE
     Indication: GASTROOESOPHAGEAL REFLUX DISEASE
     Dosage: 40 MG, DAILY
     Route: 048
     Dates: start: 2018
  2. INSULIN [Concomitant]
     Active Substance: INSULIN NOS
     Indication: DIABETES MELLITUS
     Dosage: 10 U, DAILY
     Route: 058
     Dates: start: 20210427
  3. PACLITAXEL ALBUMIN [Suspect]
     Active Substance: PACLITAXEL
     Dosage: 75 MG/M2, CYCLICAL (167MG INFUSED)
     Route: 042
     Dates: start: 20210525
  4. ASPIRIN [ACETYLSALICYLIC ACID] [Concomitant]
     Active Substance: ASPIRIN
     Indication: PRODUCT USED FOR UNKNOWN INDICATION
     Dosage: 81 MG, DAILY
     Route: 048
     Dates: start: 2016
  5. ATORVASTATIN [Concomitant]
     Active Substance: ATORVASTATIN
     Indication: DYSLIPIDAEMIA
     Dosage: 20 MG, DAILY
     Route: 048
     Dates: start: 2019
  6. OMEGA?3 FISH OIL [Concomitant]
     Active Substance: FISH OIL\OMEGA-3 FATTY ACIDS
     Indication: SUPPLEMENTATION THERAPY
     Dosage: 1000 MG, DAILY
     Route: 048
     Dates: start: 2018
  7. HYOSCYAMINE. [Concomitant]
     Active Substance: HYOSCYAMINE
     Indication: FLATULENCE
     Dosage: UNK (0.125)
     Route: 048
     Dates: start: 202103
  8. ZOFRAN [Concomitant]
     Active Substance: ONDANSETRON HYDROCHLORIDE
     Indication: NAUSEA
     Dosage: 4 MG, QID (4 MG,1 IN 6 HR)
     Route: 048
     Dates: start: 20210414
  9. PACLITAXEL ALBUMIN [Suspect]
     Active Substance: PACLITAXEL
     Indication: DUCTAL ADENOCARCINOMA OF PANCREAS
     Dosage: 100 MG/M2, (225MG) 2/W
     Route: 042
     Dates: start: 20210413, end: 20210511
  10. HYDROCHLOROTHIAZIDE. [Suspect]
     Active Substance: HYDROCHLOROTHIAZIDE
     Indication: HYPERTENSION
     Dosage: UNK UNK, DAILY (20?12.5 MG)
     Route: 048
     Dates: start: 2019
  11. LISINOPRIL. [Suspect]
     Active Substance: LISINOPRIL
     Indication: HYPERTENSION
     Dosage: 20 MG, DAILY
     Route: 048
     Dates: start: 2019
  12. COMPAZINE [Concomitant]
     Active Substance: PROCHLORPERAZINE MALEATE
     Indication: NAUSEA
     Dosage: 40 MG, OTHER (10 MG,1 IN 6 HR)
     Route: 048
     Dates: start: 20210414
  13. TRAZODONE [Concomitant]
     Active Substance: TRAZODONE HYDROCHLORIDE
     Indication: INSOMNIA
     Dosage: 50 MG, EACH EVENING
     Dates: start: 202103
  14. HYDROCODONE/ACETAMINOPHEN [Concomitant]
     Active Substance: ACETAMINOPHEN\HYDROCODONE
     Indication: ABDOMINAL PAIN
     Dosage: UNK UNK, OTHER (5/325 MG; PRN (1 IN 6 HR)
     Route: 048
     Dates: start: 202103
  15. HYDROCODONE/ACETAMINOPHEN [Concomitant]
     Active Substance: ACETAMINOPHEN\HYDROCODONE
     Indication: BACK PAIN
  16. APIXABAN [Concomitant]
     Active Substance: APIXABAN
     Indication: SPLENIC VEIN THROMBOSIS
     Dosage: 5 MG, DAILY
     Route: 048
  17. METFORMIN [Concomitant]
     Active Substance: METFORMIN HYDROCHLORIDE
     Indication: DIABETES MELLITUS
     Dosage: 1000 MG, BID
     Route: 048
     Dates: start: 2018
  18. OLANZAPINE. [Concomitant]
     Active Substance: OLANZAPINE
     Indication: NAUSEA
     Dosage: 5 MG, EACH EVENING
     Route: 048
     Dates: start: 20210414
  19. INVOKANA [Concomitant]
     Active Substance: CANAGLIFLOZIN
     Indication: DIABETES MELLITUS
     Dosage: 300 MG, DAILY
     Route: 048
     Dates: start: 2018
  20. GEMCITABINE HYDROCHLORIDE. [Suspect]
     Active Substance: GEMCITABINE HYDROCHLORIDE
     Indication: DUCTAL ADENOCARCINOMA OF PANCREAS
     Dosage: 800 MG/M2, (1786 MG) 2/W
     Route: 042
     Dates: start: 20210413, end: 20210511
  21. METOPROLOL. [Suspect]
     Active Substance: METOPROLOL
     Indication: HYPERTENSION
     Dosage: UNK UNK, UNKNOWN
     Route: 048
  22. AMLODIPINE [Suspect]
     Active Substance: AMLODIPINE BESYLATE
     Indication: HYPERTENSION
     Dosage: UNK UNK, UNKNOWN
     Route: 048

REACTIONS (3)
  - Hypotension [Recovered/Resolved]
  - Fatigue [Recovered/Resolved]
  - Tachycardia [Recovered/Resolved]

NARRATIVE: CASE EVENT DATE: 20210525
